FAERS Safety Report 8063060-5 (Version None)
Quarter: 2012Q1

REPORT INFORMATION
  Report Type: 
  Country: None (occurrence: None)
  Receive Date: 20120123
  Receipt Date: 20120118
  Transmission Date: 20120608
  Serious: Yes (Other)
  Sender: FDA-Public Use
  Company Number: US-JNJFOC-20111000989

PATIENT
  Sex: Female
  Weight: 61.24 kg

DRUGS (3)
  1. NUCYNTA [Suspect]
     Indication: BACK PAIN
     Route: 048
     Dates: start: 20111001
  2. NUCYNTA [Suspect]
     Dosage: TWICE A DAY
     Route: 048
     Dates: start: 20110601, end: 20110601
  3. TRAMADOL HCL [Suspect]
     Indication: BACK PAIN
     Dosage: EVERY 6 HOURS
     Route: 065

REACTIONS (2)
  - CONFUSIONAL STATE [None]
  - VERTIGO [None]
